FAERS Safety Report 7789179-1 (Version None)
Quarter: 2011Q3

REPORT INFORMATION
  Report Type: 
  Country: None (occurrence: None)
  Receive Date: 20110930
  Receipt Date: 20110923
  Transmission Date: 20111222
  Serious: Yes (Other)
  Sender: FDA-Public Use
  Company Number: US-AMGEN-USASP2011049268

PATIENT
  Age: 58 Year
  Sex: Male

DRUGS (1)
  1. ENBREL [Suspect]
     Indication: PSORIATIC ARTHROPATHY
     Dosage: 50 MG, 2 TIMES/WK
     Dates: start: 20010901

REACTIONS (5)
  - SKIN HAEMORRHAGE [None]
  - DIABETES MELLITUS [None]
  - POST CONCUSSION SYNDROME [None]
  - DIARRHOEA [None]
  - PSORIATIC ARTHROPATHY [None]
